FAERS Safety Report 5978716-5 (Version None)
Quarter: 2008Q4

REPORT INFORMATION
  Report Type: 
  Country: None (occurrence: None)
  Receive Date: 20081204
  Receipt Date: 20081126
  Transmission Date: 20090506
  Serious: Yes (Hospitalization)
  Sender: FDA-Public Use
  Company Number: CN-ASTRAZENECA-2008AP09136

PATIENT
  Age: 44 Year
  Sex: Male

DRUGS (1)
  1. NAROPIN [Suspect]
     Indication: SURGERY
     Dosage: 10MG/ML DILUTED WITH GLUCOSE TO 5MG/ML.
     Route: 037
     Dates: start: 20081125, end: 20081125

REACTIONS (1)
  - NEURALGIA [None]
